FAERS Safety Report 20368238 (Version 1)
Quarter: 2022Q1

REPORT INFORMATION
  Report Type: Spontaneous
  Country: US (occurrence: US)
  Receive Date: 20220124
  Receipt Date: 20220124
  Transmission Date: 20220424
  Serious: No
  Sender: FDA-Public Use
  Company Number: US-BRISTOL-MYERS SQUIBB COMPANY-BMS-2022-008268

PATIENT
  Age: 78 Year
  Sex: Male

DRUGS (1)
  1. SPRYCEL [Suspect]
     Active Substance: DASATINIB
     Indication: Acute lymphocytic leukaemia
     Dosage: 40 MILLIGRAM, DAILY
     Route: 048
     Dates: start: 201802

REACTIONS (4)
  - Mental status changes [Unknown]
  - General physical health deterioration [Unknown]
  - Hypoaesthesia [Unknown]
  - Pain [Unknown]
